FAERS Safety Report 7323271-0 (Version None)
Quarter: 2011Q1

REPORT INFORMATION
  Report Type: 
  Country: None (occurrence: None)
  Receive Date: 20110301
  Receipt Date: 20110217
  Transmission Date: 20110831
  Serious: Yes (Hospitalization)
  Sender: FDA-Public Use
  Company Number: JP-SANOFI-AVENTIS-2011SA007840

PATIENT
  Age: 68 Year
  Sex: Male

DRUGS (6)
  1. MYSLEE [Suspect]
     Route: 048
     Dates: start: 20110128, end: 20110128
  2. TAMSULOSIN HCL [Concomitant]
     Indication: BENIGN PROSTATIC HYPERPLASIA
  3. ACTOS [Concomitant]
     Indication: DIABETES MELLITUS
  4. MYSLEE [Suspect]
     Route: 048
     Dates: start: 20110128, end: 20110128
  5. LASIX [Concomitant]
     Indication: HYPERTENSION
  6. AMARYL [Concomitant]
     Indication: DIABETES MELLITUS

REACTIONS (3)
  - INAPPROPRIATE ANTIDIURETIC HORMONE SECRETION [None]
  - OVERDOSE [None]
  - HYPONATRAEMIA [None]
